FAERS Safety Report 25163226 (Version 1)
Quarter: 2025Q2

REPORT INFORMATION
  Report Type: Spontaneous
  Country: CN (occurrence: CN)
  Receive Date: 20250404
  Receipt Date: 20250404
  Transmission Date: 20250716
  Serious: Yes (Other)
  Sender: MERCK SHARP AND DOHME
  Company Number: CN-009507513-2269833

PATIENT
  Age: 29 Year
  Sex: Female
  Weight: 79 kg

DRUGS (5)
  1. IMIPENEM [Suspect]
     Active Substance: IMIPENEM
     Indication: Anti-infective therapy
     Dates: start: 2022, end: 2022
  2. GLUTATHIONE [Suspect]
     Active Substance: GLUTATHIONE
     Dates: end: 2022
  3. VANCOMYCIN [Concomitant]
     Active Substance: VANCOMYCIN
     Indication: Anti-infective therapy
  4. LINEZOLID [Concomitant]
     Active Substance: LINEZOLID
     Route: 048
  5. LEVOFLOXACIN [Concomitant]
     Active Substance: LEVOFLOXACIN
     Route: 048

REACTIONS (3)
  - Insulin autoimmune syndrome [Recovering/Resolving]
  - Vomiting [Recovering/Resolving]
  - Nausea [Recovering/Resolving]

NARRATIVE: CASE EVENT DATE: 20220101
